FAERS Safety Report 9882429 (Version 2)
Quarter: 2014Q1

REPORT INFORMATION
  Report Type: Report from Study
  Country: GB (occurrence: GB)
  Receive Date: 20140207
  Receipt Date: 20140212
  Transmission Date: 20141002
  Serious: Yes (Hospitalization)
  Sender: FDA-Public Use
  Company Number: GB-009507513-1401GBR014492

PATIENT
  Age: 72 Year
  Sex: Male
  Weight: 70.35 kg

DRUGS (3)
  1. DEXAMETHASONE TABLETS BP 500MCG [Suspect]
     Indication: PLASMA CELL MYELOMA
     Dosage: UNK, (DAYS 1,8,15 AND 22)
     Route: 048
     Dates: start: 20130716, end: 20131126
  2. REVLIMID [Suspect]
     Indication: PLASMA CELL MYELOMA
     Dosage: 10 MG, QD (DAYS 1-21)
     Route: 048
     Dates: start: 20130716, end: 20131125
  3. PLACEBO (UNSPECIFIED) [Suspect]
     Indication: PLASMA CELL MYELOMA
     Dosage: 4 MG, (DAYS 1,8 AND 15)
     Route: 048
     Dates: start: 20130716, end: 20131119

REACTIONS (1)
  - Plasmacytoma [Recovering/Resolving]
